FAERS Safety Report 7510030-9 (Version None)
Quarter: 2011Q2

REPORT INFORMATION
  Report Type: 
  Country: None (occurrence: None)
  Receive Date: 20110527
  Receipt Date: 20110519
  Transmission Date: 20111010
  Serious: Yes (Death, Other)
  Sender: FDA-Public Use
  Company Number: JP-AMGEN-JPNCT2010000211

PATIENT
  Age: 54 Year
  Sex: Male
  Weight: 60 kg

DRUGS (13)
  1. FLUOROURACIL [Concomitant]
     Indication: COLORECTAL CANCER
     Route: 040
     Dates: start: 20100708, end: 20100826
  2. FLUOROURACIL [Concomitant]
     Route: 041
     Dates: start: 20100708, end: 20100826
  3. ALMETA [Concomitant]
     Route: 062
  4. TOPSYM [Concomitant]
     Route: 062
  5. DEXALTIN [Concomitant]
     Route: 049
  6. IRINOTECAN HCL [Concomitant]
     Indication: COLORECTAL CANCER
     Dosage: 225 MG, Q2WK
     Route: 041
     Dates: start: 20100708, end: 20100826
  7. ORADOL [Concomitant]
     Route: 048
  8. AFTACH [Concomitant]
     Route: 049
  9. PANITUMUMAB [Suspect]
     Indication: COLORECTAL CANCER
     Dosage: 6 MG/KG, Q2WK
     Route: 041
     Dates: start: 20100708, end: 20100826
  10. LEUCOVORIN CALCIUM [Concomitant]
     Indication: COLORECTAL CANCER
     Dosage: 300 MG, Q2WK
     Route: 041
     Dates: start: 20100708, end: 20100826
  11. CORTICOSTEROIDS [Concomitant]
     Indication: PROPHYLAXIS
     Route: 065
  12. BETAMETHASONE [Concomitant]
     Route: 062
  13. ALLEGRA [Concomitant]
     Route: 048

REACTIONS (4)
  - PARONYCHIA [None]
  - ACNE [None]
  - STOMATITIS [None]
  - COLORECTAL CANCER [None]
